FAERS Safety Report 7509195-4 (Version None)
Quarter: 2011Q2

REPORT INFORMATION
  Report Type: 
  Country: None (occurrence: None)
  Receive Date: 20110519
  Receipt Date: 20110509
  Transmission Date: 20111010
  Serious: Yes (Other)
  Sender: FDA-Public Use
  Company Number: JHP201100135

PATIENT

DRUGS (1)
  1. ADRENALIN CHLORIDE SOLUTION (EPINEPHRINE) INJECTION, 1MG/ML [Suspect]
     Indication: ANAPHYLACTIC SHOCK
     Dosage: INTRAVENOUS
     Route: 042

REACTIONS (3)
  - ANAPHYLACTOID SHOCK [None]
  - CARDIOGENIC SHOCK [None]
  - STRESS CARDIOMYOPATHY [None]
